FAERS Safety Report 14867289 (Version 1)
Quarter: 2018Q2

REPORT INFORMATION
  Report Type: Report from Study
  Country: US (occurrence: US)
  Receive Date: 20180508
  Receipt Date: 20180508
  Transmission Date: 20180711
  Serious: Yes (Hospitalization)
  Sender: FDA-Public Use
  Company Number: US-ALKERMES INC.-ALK-2017-004826

PATIENT
  Age: 38 Year
  Sex: Female
  Weight: 69.5 kg

DRUGS (7)
  1. KLONOPIN [Concomitant]
     Active Substance: CLONAZEPAM
     Indication: PRODUCT USED FOR UNKNOWN INDICATION
     Dosage: 2 MG, UNK
     Route: 048
     Dates: end: 20171009
  2. AMBIEN CR [Concomitant]
     Active Substance: ZOLPIDEM TARTRATE
     Indication: PRODUCT USED FOR UNKNOWN INDICATION
     Dosage: 10 MG, UNK
     Route: 048
     Dates: end: 20171009
  3. ZYPREXA [Concomitant]
     Active Substance: OLANZAPINE
     Indication: PRODUCT USED FOR UNKNOWN INDICATION
     Dosage: 7.5 MG, UNK
     Route: 048
     Dates: end: 20171009
  4. MINIPRESS [Concomitant]
     Active Substance: PRAZOSIN HYDROCHLORIDE
     Indication: PRODUCT USED FOR UNKNOWN INDICATION
     Dosage: 1 MG, UNK
     Route: 048
     Dates: end: 20171009
  5. VIVITROL [Suspect]
     Active Substance: NALTREXONE
     Indication: DRUG DEPENDENCE
     Dosage: 380 MG, QMO
     Route: 030
     Dates: start: 20170713, end: 20170713
  6. LEXAPRO [Concomitant]
     Active Substance: ESCITALOPRAM OXALATE
     Indication: PRODUCT USED FOR UNKNOWN INDICATION
     Dosage: 10 MG, UNK
     Dates: end: 20171009
  7. DOLOPHINE [Concomitant]
     Active Substance: METHADONE HYDROCHLORIDE
     Indication: PRODUCT USED FOR UNKNOWN INDICATION
     Dosage: 10 MG, UNK
     Route: 048
     Dates: end: 20171009

REACTIONS (12)
  - Feeling of despair [Recovered/Resolved]
  - Drug dependence [Not Recovered/Not Resolved]
  - Hepatitis C virus test positive [Not Recovered/Not Resolved]
  - Tooth injury [Not Recovered/Not Resolved]
  - Tooth disorder [Not Recovered/Not Resolved]
  - Withdrawal syndrome [Unknown]
  - Periodontitis [Not Recovered/Not Resolved]
  - Menorrhagia [Not Recovered/Not Resolved]
  - Pulpitis dental [Not Recovered/Not Resolved]
  - Substance dependence [Unknown]
  - Suicidal ideation [Recovered/Resolved]
  - Anxiety [Not Recovered/Not Resolved]

NARRATIVE: CASE EVENT DATE: 20171002
